FAERS Safety Report 15330042 (Version 1)
Quarter: 2018Q3

REPORT INFORMATION
  Report Type: Spontaneous
  Country: IS (occurrence: IS)
  Receive Date: 20180829
  Receipt Date: 20180829
  Transmission Date: 20181010
  Serious: Yes (Death)
  Sender: FDA-Public Use
  Company Number: PHHY2018IS078648

PATIENT
  Age: 82 Year

DRUGS (8)
  1. CLARITHROMYCIN. [Suspect]
     Active Substance: CLARITHROMYCIN
     Indication: OESOPHAGEAL CANDIDIASIS
  2. RABEPRAZOL [Suspect]
     Active Substance: RABEPRAZOLE
     Indication: OESOPHAGEAL CANDIDIASIS
  3. FLUCONAZOLE. [Suspect]
     Active Substance: FLUCONAZOLE
     Indication: HELICOBACTER INFECTION
     Route: 065
  4. FLUCONAZOLE. [Suspect]
     Active Substance: FLUCONAZOLE
     Indication: OESOPHAGEAL CANDIDIASIS
  5. CLARITHROMYCIN. [Suspect]
     Active Substance: CLARITHROMYCIN
     Indication: HELICOBACTER INFECTION
     Route: 065
  6. AMOXICILLIN. [Suspect]
     Active Substance: AMOXICILLIN
     Indication: HELICOBACTER INFECTION
     Route: 065
  7. AMOXICILLIN. [Suspect]
     Active Substance: AMOXICILLIN
     Indication: OESOPHAGEAL CANDIDIASIS
  8. RABEPRAZOL [Suspect]
     Active Substance: RABEPRAZOLE
     Indication: HELICOBACTER INFECTION
     Route: 065

REACTIONS (5)
  - Renal failure [Fatal]
  - Cardiac failure chronic [Fatal]
  - Jaundice [Fatal]
  - Hepatotoxicity [Fatal]
  - Drug-induced liver injury [Fatal]
